FAERS Safety Report 4820664-8 (Version None)
Quarter: 2005Q4

REPORT INFORMATION
  Report Type: 
  Country: None (occurrence: None)
  Receive Date: 20051014
  Receipt Date: 20050701
  Transmission Date: 20060501
  Serious: No
  Sender: FDA-Public Use
  Company Number: 2005SP001703

PATIENT
  Age: 57 Year
  Sex: Female
  Weight: 71.6683 kg

DRUGS (12)
  1. LUNESTA [Suspect]
     Dosage: 2 MG; HS; ORAL; 3 MG; HS; ORAL; 2 MG; HS
     Route: 048
     Dates: start: 20050101, end: 20050101
  2. LUNESTA [Suspect]
     Dosage: 2 MG; HS; ORAL; 3 MG; HS; ORAL; 2 MG; HS
     Route: 048
     Dates: start: 20050101
  3. LUNESTA [Suspect]
     Dosage: 2 MG; HS; ORAL; 3 MG; HS; ORAL; 2 MG; HS
     Route: 048
     Dates: start: 20050630
  4. AMBIEN [Concomitant]
  5. VICODIN [Concomitant]
  6. MORPHINE [Concomitant]
  7. SYNTHROID [Concomitant]
  8. CELEXA [Concomitant]
  9. LASIX [Concomitant]
  10. AZMACORT [Concomitant]
  11. PROVENTIL [Concomitant]
  12. CRESTOR [Concomitant]

REACTIONS (1)
  - SOMNOLENCE [None]
